FAERS Safety Report 25835694 (Version 1)
Quarter: 2025Q3

REPORT INFORMATION
  Report Type: Report from Study
  Country: US (occurrence: US)
  Receive Date: 20250923
  Receipt Date: 20250923
  Transmission Date: 20251020
  Serious: No
  Sender: BIOVITRUM
  Company Number: US-BIOVITRUM-2025-US-012797

PATIENT
  Age: 21 Year
  Sex: Female

DRUGS (1)
  1. KINERET [Suspect]
     Active Substance: ANAKINRA
     Indication: Pyrexia
     Route: 058
     Dates: start: 20250827

REACTIONS (3)
  - Injection site reaction [Unknown]
  - Off label use [Recovered/Resolved]
  - Swelling face [Unknown]

NARRATIVE: CASE EVENT DATE: 20250827
